FAERS Safety Report 5835749-7 (Version None)
Quarter: 2008Q3

REPORT INFORMATION
  Report Type: 
  Country: None (occurrence: None)
  Receive Date: 20080806
  Receipt Date: 20080729
  Transmission Date: 20090109
  Serious: Yes (Death)
  Sender: FDA-Public Use
  Company Number: RU-ROCHE-578583

PATIENT
  Sex: Male
  Weight: 59 kg

DRUGS (3)
  1. CAPECITABINE [Suspect]
     Indication: GASTRIC CANCER
     Dosage: 100 MGM2 TWICE DAILY FOR 14 DAYS EVERY 3 WEEKS, AS PER PROTOCOL.
     Route: 048
     Dates: start: 20080708, end: 20080729
  2. PLACEBO [Suspect]
     Indication: GASTRIC CANCER
     Route: 042
     Dates: start: 20080708, end: 20080729
  3. CISPLATIN [Suspect]
     Indication: GASTRIC CANCER
     Route: 042
     Dates: start: 20080708, end: 20080729

REACTIONS (1)
  - DEATH [None]
